FAERS Safety Report 11747136 (Version 5)
Quarter: 2017Q1

REPORT INFORMATION
  Report Type: Spontaneous
  Country: US (occurrence: US)
  Receive Date: 20151117
  Receipt Date: 20170209
  Transmission Date: 20170428
  Serious: Yes (Hospitalization, Disabling, Other)
  Sender: FDA-Public Use
  Company Number: US-009507513-1511USA008402

PATIENT
  Sex: Female

DRUGS (4)
  1. ALENDRONATE SODIUM. [Suspect]
     Active Substance: ALENDRONATE SODIUM
     Indication: OSTEOPOROSIS
     Dosage: 70 MG, QW
     Route: 048
     Dates: start: 20101004, end: 20110505
  2. VITAMINS (UNSPECIFIED) [Concomitant]
     Active Substance: VITAMINS
     Dosage: 1 DF, QD
     Route: 048
     Dates: start: 2000
  3. FOSAMAX [Suspect]
     Active Substance: ALENDRONATE SODIUM
     Indication: OSTEOPOROSIS
     Dosage: 10 MG, 1 TAB, QD
     Route: 048
     Dates: start: 19991012, end: 20060904
  4. ALENDRONATE SODIUM. [Suspect]
     Active Substance: ALENDRONATE SODIUM
     Indication: OSTEOPOROSIS
     Dosage: 70 MG, 1 TAB, QW
     Route: 048
     Dates: start: 20080524, end: 20110402

REACTIONS (17)
  - Hypothyroidism [Unknown]
  - Calcium deficiency [Unknown]
  - Osteoporosis [Not Recovered/Not Resolved]
  - Hypercholesterolaemia [Unknown]
  - Herpes zoster [Unknown]
  - Sleep apnoea syndrome [Unknown]
  - Bone lesion [Unknown]
  - Anaemia postoperative [Unknown]
  - Post procedural constipation [Unknown]
  - Femur fracture [Recovered/Resolved]
  - Hypertension [Unknown]
  - Rotator cuff syndrome [Unknown]
  - Femur fracture [Not Recovered/Not Resolved]
  - Vitamin D deficiency [Unknown]
  - Bone lesion [Unknown]
  - Atrial fibrillation [Unknown]
  - Hyperlipidaemia [Unknown]

NARRATIVE: CASE EVENT DATE: 2000
